FAERS Safety Report 5934098-6 (Version None)
Quarter: 2008Q4

REPORT INFORMATION
  Report Type: 
  Country: None (occurrence: None)
  Receive Date: 20081028
  Receipt Date: 20081028
  Transmission Date: 20090506
  Serious: No
  Sender: FDA-Public Use
  Company Number: None

PATIENT
  Age: 66 Year
  Sex: Male
  Weight: 88.04 kg

DRUGS (1)
  1. DIPYRIDAMOLE [Suspect]
     Dosage: MG ONCE IV
     Route: 042
     Dates: start: 20080304, end: 20080304

REACTIONS (3)
  - ANGINA PECTORIS [None]
  - CHEST DISCOMFORT [None]
  - DYSPNOEA [None]
